FAERS Safety Report 8102901-X (Version None)
Quarter: 2012Q1

REPORT INFORMATION
  Report Type: 
  Country: None (occurrence: None)
  Receive Date: 20120201
  Receipt Date: 20120125
  Transmission Date: 20120608
  Serious: Yes (Hospitalization)
  Sender: FDA-Public Use
  Company Number: US-SANOFI-AVENTIS-2011SA048239

PATIENT
  Age: 76 Year
  Sex: Male

DRUGS (17)
  1. ASPIRIN [Suspect]
     Dosage: ={100MG
     Route: 065
     Dates: start: 20110427
  2. INTEGRILIN [Concomitant]
  3. LANTUS [Concomitant]
     Dosage: DOSE:50 UNIT(S)
     Dates: end: 20110505
  4. PLAVIX [Suspect]
     Route: 065
  5. NOVOLOG [Concomitant]
     Dosage: DOSE:36 UNIT(S)
  6. HEPARIN [Concomitant]
  7. CIPROFLOXACIN [Concomitant]
     Dates: start: 20110617, end: 20110621
  8. BETA BLOCKING AGENTS [Concomitant]
     Dates: start: 20110427
  9. PLATELET AGGREGATION INHIBITORS [Concomitant]
     Dates: start: 20110427
  10. COUMADIN [Suspect]
     Route: 065
  11. LANTUS [Concomitant]
     Dosage: DOSE:46 UNIT(S)
     Dates: start: 20110505
  12. ACE INHIBITOR NOS [Concomitant]
     Dates: start: 20110427
  13. DIURETICS [Concomitant]
     Dates: start: 20110427
  14. ACE INHIBITOR NOS [Concomitant]
  15. ORGANIC NITRATES [Concomitant]
     Dates: start: 20110427
  16. HMG COA REDUCTASE INHIBITORS [Concomitant]
     Dates: start: 20110427
  17. ANTITHROMBOTIC AGENTS [Concomitant]
     Route: 048
     Dates: start: 20110427

REACTIONS (3)
  - TRANSITIONAL CELL CARCINOMA [None]
  - INTERNATIONAL NORMALISED RATIO INCREASED [None]
  - HAEMATURIA [None]
